FAERS Safety Report 9776238 (Version 2)
Quarter: 2014Q1

REPORT INFORMATION
  Report Type: Spontaneous
  Country: US (occurrence: US)
  Receive Date: 20131220
  Receipt Date: 20140102
  Transmission Date: 20141002
  Serious: Yes (Hospitalization)
  Sender: FDA-Public Use
  Company Number: US-BRISTOL-MYERS SQUIBB COMPANY-19911379

PATIENT
  Age: 53 Year
  Sex: Male

DRUGS (4)
  1. BYDUREON [Suspect]
     Indication: TYPE 2 DIABETES MELLITUS
     Route: 058
     Dates: start: 20130827, end: 20130903
  2. ZOFRAN [Concomitant]
  3. LANTUS [Concomitant]
     Dates: end: 20130827
  4. INSULIN [Concomitant]

REACTIONS (8)
  - Nausea [Unknown]
  - Vomiting [Unknown]
  - Ketoacidosis [Recovered/Resolved]
  - Atrial fibrillation [Unknown]
  - Mental status changes [Unknown]
  - Pneumonia [Unknown]
  - Renal failure [Recovered/Resolved]
  - Drug administration error [Unknown]
